FAERS Safety Report 19799392 (Version 1)
Quarter: 2021Q3

REPORT INFORMATION
  Report Type: Spontaneous
  Country: DE (occurrence: DE)
  Receive Date: 20210907
  Receipt Date: 20210907
  Transmission Date: 20211014
  Serious: Yes (Hospitalization)
  Sender: FDA-Public Use
  Company Number: DE-MYLANLABS-2021M1058006

PATIENT
  Age: 76 Year
  Sex: Male

DRUGS (10)
  1. SIMVASTATIN. [Concomitant]
     Active Substance: SIMVASTATIN
     Dosage: 40 MG, 0?0?1?0
  2. PANTOPRAZOL                        /01263201/ [Concomitant]
     Active Substance: PANTOPRAZOLE
     Dosage: 40 MG, 1?0?1?0
  3. TARDYFERON?FOL [Concomitant]
     Dosage: 1?0?0?0
  4. METAMIZOL                          /06276701/ [Concomitant]
     Active Substance: METAMIZOLE
     Dosage: BEDARF, TROPFEN
  5. MAGNESIUM [Concomitant]
     Active Substance: MAGNESIUM
     Dosage: 1?0?1?0
  6. ESCITALOPRAM [Suspect]
     Active Substance: ESCITALOPRAM OXALATE
     Indication: PRODUCT USED FOR UNKNOWN INDICATION
     Dosage: 10 MILLIGRAM, QD
  7. PHENPROCOUMON [Suspect]
     Active Substance: PHENPROCOUMON
     Indication: PRODUCT USED FOR UNKNOWN INDICATION
     Dosage: 3 MILLIGRAM,ACCORDING TO QUICK
  8. IPRATROPIUMBROMID/SALBUTAMOL CIPLA [Concomitant]
     Dosage: REQUIREMENT
     Route: 055
  9. LEVOTHYROXINUM NATRICUM [Concomitant]
     Dosage: 150 ?G, 1?0?0?0
  10. METOCLOPRAMID                      /00041901/ [Concomitant]
     Active Substance: METOCLOPRAMIDE
     Dosage: 30 MG, 1?0?0?0

REACTIONS (4)
  - Overdose [Unknown]
  - Abdominal pain [Unknown]
  - Haematochezia [Unknown]
  - Product prescribing error [Unknown]
